FAERS Safety Report 25181438 (Version 2)
Quarter: 2025Q2

REPORT INFORMATION
  Report Type: Report from Study
  Country: CA (occurrence: CA)
  Receive Date: 20250410
  Receipt Date: 20250429
  Transmission Date: 20250717
  Serious: Yes (Other)
  Sender: Alvotech
  Company Number: CA-JAMP PHARMA CORPORATION-2023-JAM-CA-00457

PATIENT
  Age: 21 Year
  Sex: Male

DRUGS (5)
  1. SIMLANDI [Suspect]
     Active Substance: ADALIMUMAB-RYVK
     Indication: Colitis ulcerative
     Dosage: 80 MILLIGRAM, WEEKLY
     Route: 058
     Dates: start: 2023
  2. SIMLANDI [Suspect]
     Active Substance: ADALIMUMAB-RYVK
     Indication: Colitis ulcerative
     Dosage: 80 MILLIGRAM, EVERY 2 WEEKS
     Route: 058
     Dates: start: 20230323
  3. SIMLANDI [Suspect]
     Active Substance: ADALIMUMAB-RYVK
     Indication: Colitis ulcerative
     Dosage: 40 MG (ONE INJECTION) WEEKLY
     Route: 058
  4. SIMLANDI [Suspect]
     Active Substance: ADALIMUMAB-RYVK
     Indication: Colitis ulcerative
     Dosage: 80 MG (2X 40 MG) WEEKLY
     Route: 058
  5. SIMLANDI [Suspect]
     Active Substance: ADALIMUMAB-RYVK
     Indication: Colitis ulcerative
     Dosage: 40 MG, WEEKLY
     Route: 058

REACTIONS (4)
  - Colitis ulcerative [Unknown]
  - Abdominal pain lower [Not Recovered/Not Resolved]
  - Incorrect dose administered [Recovered/Resolved]
  - Intentional product use issue [Unknown]

NARRATIVE: CASE EVENT DATE: 20230510
